FAERS Safety Report 17093698 (Version 1)
Quarter: 2019Q4

REPORT INFORMATION
  Report Type: Spontaneous
  Country: DE (occurrence: DE)
  Receive Date: 20191129
  Receipt Date: 20191129
  Transmission Date: 20200122
  Serious: Yes (Other)
  Sender: FDA-Public Use
  Company Number: NVSC2019DE052222

PATIENT
  Age: 35 Year
  Sex: Female

DRUGS (2)
  1. NAPROXEN. [Suspect]
     Active Substance: NAPROXEN
     Indication: SPONDYLITIS
     Dosage: 500 MG (UP TO 2XDATE)
     Route: 048
  2. DICLOFENAC [Suspect]
     Active Substance: DICLOFENAC
     Indication: SPONDYLITIS
     Dosage: 75 MG (UP TO 2XDATE)
     Route: 048

REACTIONS (2)
  - Cervicitis [Recovered/Resolved]
  - Vulvovaginitis [Recovered/Resolved]

NARRATIVE: CASE EVENT DATE: 20190311
